FAERS Safety Report 21391002 (Version 1)
Quarter: 2022Q3

REPORT INFORMATION
  Report Type: Spontaneous
  Country: US (occurrence: None)
  Receive Date: 20220928
  Receipt Date: 20220928
  Transmission Date: 20221027
  Serious: Yes (unspecified)
  Sender: FDA-Public Use
  Company Number: None

PATIENT
  Age: 59 Year
  Sex: Male

DRUGS (1)
  1. SUMATRIPTAN [Suspect]
     Active Substance: SUMATRIPTAN
     Indication: Headache
     Dosage: FREQUENCY : ONCE;?
     Route: 058
     Dates: start: 20220811

REACTIONS (4)
  - Chest pain [None]
  - Electrocardiogram ST segment depression [None]
  - Angina pectoris [None]
  - Acute myocardial infarction [None]

NARRATIVE: CASE EVENT DATE: 20220811
